FAERS Safety Report 15267880 (Version 1)
Quarter: 2018Q3

REPORT INFORMATION
  Report Type: Spontaneous
  Country: US (occurrence: US)
  Receive Date: 20180724
  Receipt Date: 20180724
  Transmission Date: 20181010
  Serious: No
  Sender: FDA-Public Use
  Company Number: None

PATIENT
  Age: 62 Year
  Sex: Male

DRUGS (1)
  1. OPDIVO [Suspect]
     Active Substance: NIVOLUMAB

REACTIONS (3)
  - Pain in extremity [None]
  - Weight increased [None]
  - Pruritus [None]

NARRATIVE: CASE EVENT DATE: 20180703
